FAERS Safety Report 9611464 (Version 1)
Quarter: 2013Q4

REPORT INFORMATION
  Report Type: Spontaneous
  Country: US (occurrence: US)
  Receive Date: 20131010
  Receipt Date: 20131010
  Transmission Date: 20140711
  Serious: Yes (Other)
  Sender: FDA-Public Use
  Company Number: US-ASTRAZENECA-2013SE73302

PATIENT
  Age: 48 Year
  Sex: Female
  Weight: 90.7 kg

DRUGS (3)
  1. FASLODEX [Suspect]
     Indication: BREAST CANCER STAGE IV
     Dosage: 2 INJECTIONS ONE IN EACH BUTTOCK
     Route: 030
     Dates: start: 201308
  2. DURAGESIC [Concomitant]
     Indication: PAIN
  3. VALIUM [Concomitant]
     Indication: PAIN

REACTIONS (5)
  - Tumour marker increased [Unknown]
  - Bone pain [Unknown]
  - Drug intolerance [Not Recovered/Not Resolved]
  - Hepatic enzyme abnormal [Not Recovered/Not Resolved]
  - Injection site pain [Not Recovered/Not Resolved]
